FAERS Safety Report 20327680 (Version 4)
Quarter: 2022Q1

REPORT INFORMATION
  Report Type: Spontaneous
  Country: IL (occurrence: IL)
  Receive Date: 20220112
  Receipt Date: 20220326
  Transmission Date: 20220423
  Serious: Yes (Hospitalization)
  Sender: FDA-Public Use
  Company Number: IL-SA-SAC20220107001087

PATIENT
  Age: 58 Year
  Sex: Male

DRUGS (1)
  1. CABLIVI [Suspect]
     Active Substance: CAPLACIZUMAB-YHDP
     Indication: Thrombotic thrombocytopenic purpura
     Dosage: 10 MG, QD

REACTIONS (4)
  - Platelet count decreased [Unknown]
  - General physical health deterioration [Not Recovered/Not Resolved]
  - Product dose omission issue [Unknown]
  - Product use issue [Unknown]
